FAERS Safety Report 8473312-2 (Version None)
Quarter: 2012Q2

REPORT INFORMATION
  Report Type: 
  Country: None (occurrence: None)
  Receive Date: 20120628
  Receipt Date: 20120622
  Transmission Date: 20120825
  Serious: Yes (Other)
  Sender: FDA-Public Use
  Company Number: US-AMGEN-USASP2012038957

PATIENT
  Age: 77 Year
  Sex: Female

DRUGS (1)
  1. ENBREL [Suspect]
     Indication: RHEUMATOID ARTHRITIS
     Dosage: 50 MG, QWK
     Dates: start: 20080501

REACTIONS (6)
  - ASTHENIA [None]
  - HYPERTENSION [None]
  - FATIGUE [None]
  - URINARY TRACT INFECTION [None]
  - HYPOTENSION [None]
  - MALAISE [None]
